FAERS Safety Report 6951484-6 (Version None)
Quarter: 2010Q3

REPORT INFORMATION
  Report Type: 
  Country: None (occurrence: None)
  Receive Date: 20100828
  Receipt Date: 20100324
  Transmission Date: 20110219
  Serious: No
  Sender: FDA-Public Use
  Company Number: US-ABBOTT-10P-163-0635421-00

PATIENT
  Sex: Male
  Weight: 115.77 kg

DRUGS (4)
  1. NIASPAN [Suspect]
     Indication: HIGH DENSITY LIPOPROTEIN DECREASED
     Dates: start: 20050101, end: 20050101
  2. CRESTOR [Concomitant]
     Indication: HYPERTROPHIC CARDIOMYOPATHY
  3. DIOVAN [Concomitant]
     Indication: HYPERTROPHIC CARDIOMYOPATHY
  4. NORVASC [Concomitant]
     Indication: HYPERTROPHIC CARDIOMYOPATHY

REACTIONS (4)
  - DYSPNOEA [None]
  - FEELING HOT [None]
  - FLUSHING [None]
  - PILOERECTION [None]
